FAERS Safety Report 4563829-5 (Version None)
Quarter: 2005Q1

REPORT INFORMATION
  Report Type: 
  Country: None (occurrence: None)
  Receive Date: 20050125
  Receipt Date: 20050112
  Transmission Date: 20050727
  Serious: Yes (Hospitalization)
  Sender: FDA-Public Use
  Company Number: 2005011518

PATIENT
  Sex: Female

DRUGS (1)
  1. CELEBRA           (CELECOXIB) [Suspect]
     Indication: POST PROCEDURAL PAIN
     Dosage: 400 MG (200 MG, 2 IN 1 D), ORAL
     Route: 048
     Dates: start: 20041219, end: 20041219

REACTIONS (1)
  - LARYNGEAL OEDEMA [None]
